FAERS Safety Report 25421853 (Version 2)
Quarter: 2025Q3

REPORT INFORMATION
  Report Type: Spontaneous
  Country: US (occurrence: US)
  Receive Date: 20250611
  Receipt Date: 20250924
  Transmission Date: 20251020
  Serious: No
  Sender: ELI LILLY AND COMPANY
  Company Number: US-ELI_LILLY_AND_COMPANY-US202506006009

PATIENT
  Age: 80 Year
  Sex: Female
  Weight: 48.1 kg

DRUGS (2)
  1. KISUNLA [Suspect]
     Active Substance: DONANEMAB-AZBT
     Indication: Dementia Alzheimer^s type
     Route: 042
     Dates: start: 20250321
  2. KISUNLA [Suspect]
     Active Substance: DONANEMAB-AZBT
     Indication: Dementia
     Route: 042
     Dates: start: 20250418

REACTIONS (1)
  - Amyloid related imaging abnormality-oedema/effusion [Recovering/Resolving]
